FAERS Safety Report 9685158 (Version 1)
Quarter: 2013Q4

REPORT INFORMATION
  Report Type: Spontaneous
  Country: US (occurrence: None)
  Receive Date: 20131111
  Receipt Date: 20131111
  Transmission Date: 20140711
  Serious: Yes (Other)
  Sender: FDA-Public Use
  Company Number: None

PATIENT
  Age: 56 Year
  Sex: Female
  Weight: 55.34 kg

DRUGS (1)
  1. ATORVASTATIN [Suspect]
     Indication: BLOOD CHOLESTEROL DECREASED
     Dosage: 1 TABLET, ONCE DAILY
     Dates: start: 20121206, end: 20131109

REACTIONS (4)
  - Weight decreased [None]
  - Drug effect decreased [None]
  - Blood glucose fluctuation [None]
  - Diabetes mellitus [None]
